FAERS Safety Report 17837061 (Version 3)
Quarter: 2021Q1

REPORT INFORMATION
  Report Type: Spontaneous
  Country: IT (occurrence: IT)
  Receive Date: 20200528
  Receipt Date: 20210120
  Transmission Date: 20210419
  Serious: Yes (Other)
  Sender: FDA-Public Use
  Company Number: NVSC2020IT146174

PATIENT
  Age: 70 Year
  Sex: Male
  Weight: 73 kg

DRUGS (3)
  1. ZOMETA [Interacting]
     Active Substance: ZOLEDRONIC ACID
     Indication: METASTASES TO BONE
  2. CABOMETYX [Interacting]
     Active Substance: CABOZANTINIB S-MALATE
     Indication: RENAL CANCER STAGE IV
     Dosage: 60 MG, QD
     Route: 048
     Dates: start: 20190628, end: 20190830
  3. ZOMETA [Suspect]
     Active Substance: ZOLEDRONIC ACID
     Indication: RENAL CANCER STAGE IV
     Dosage: 4 MG, QMO
     Route: 041
     Dates: start: 20181026, end: 20190730

REACTIONS (2)
  - Osteonecrosis of jaw [Not Recovered/Not Resolved]
  - Drug interaction [Not Recovered/Not Resolved]

NARRATIVE: CASE EVENT DATE: 20190812
